FAERS Safety Report 6428415-0 (Version None)
Quarter: 2009Q4

REPORT INFORMATION
  Report Type: 
  Country: None (occurrence: None)
  Receive Date: 20091105
  Receipt Date: 20091102
  Transmission Date: 20100525
  Serious: Yes (Death)
  Sender: FDA-Public Use
  Company Number: A0814380A

PATIENT
  Age: 92 Year
  Sex: Female

DRUGS (5)
  1. FLOVENT [Suspect]
     Indication: ASTHMA
     Dosage: 2PUFF TWICE PER DAY
     Route: 055
     Dates: start: 20060101
  2. PLAVIX [Concomitant]
  3. AVAPRO [Concomitant]
  4. BUSPAR [Concomitant]
  5. ULTRACET [Concomitant]

REACTIONS (1)
  - DEATH [None]
